FAERS Safety Report 9534590 (Version 1)
Quarter: 2013Q2

REPORT INFORMATION
  Report Type: Spontaneous
  Country: US (occurrence: None)
  Receive Date: 20130402
  Receipt Date: 20130402
  Transmission Date: 20140414
  Serious: Yes (Other)
  Sender: FDA-Public Use
  Company Number: RB-50251-2013

PATIENT
  Age: 48 Year
  Sex: Female

DRUGS (2)
  1. SUBOXONE 8 MG [Suspect]
     Indication: DRUG DEPENDENCE
     Dosage: SUBOXONE FILM; 4 MG TID, STARTED AND STOPPED THREE TIMES, SUBLINGUAL
  2. SUBOXONE 8 MG [Suspect]
     Indication: DRUG DEPENDENCE
     Dosage: 4 MG TID, STARTED TABLET.  TRIED 3 TIMES TO TAKE FILM, EACH TIME GOING BACK TO TABLET. SUBLINGUAL
     Dates: start: 2008

REACTIONS (3)
  - Wrong technique in drug usage process [None]
  - Swollen tongue [None]
  - Throat tightness [None]
